FAERS Safety Report 4760752-8 (Version None)
Quarter: 2005Q3

REPORT INFORMATION
  Report Type: 
  Country: None (occurrence: None)
  Receive Date: 20050826
  Receipt Date: 20050111
  Transmission Date: 20060218
  Serious: Yes (Death)
  Sender: FDA-Public Use
  Company Number: USA-2005-0018306

PATIENT
  Age: 18 Year
  Sex: Male

DRUGS (2)
  1. OXYCONTIN [Suspect]
  2. MORPHINE SULFATE [Suspect]

REACTIONS (2)
  - CARDIAC ARREST [None]
  - OVERDOSE [None]
